FAERS Safety Report 20653050 (Version 1)
Quarter: 2022Q1

REPORT INFORMATION
  Report Type: Report from Study
  Country: CA (occurrence: CA)
  Receive Date: 20220330
  Receipt Date: 20220330
  Transmission Date: 20220423
  Serious: Yes (Other)
  Sender: FDA-Public Use
  Company Number: CA-NOVARTISPH-NVSC2022CA071505

PATIENT
  Sex: Male

DRUGS (11)
  1. ROSUVASTATIN CALCIUM [Suspect]
     Active Substance: ROSUVASTATIN CALCIUM
     Indication: Blood calcium
     Dosage: X20 MG
     Route: 048
     Dates: start: 20200311
  2. TAMSULOSIN HYDROCHLORIDE [Suspect]
     Active Substance: TAMSULOSIN HYDROCHLORIDE
     Indication: Product used for unknown indication
     Dosage: X 4 MG, PRN
     Route: 048
  3. ALBUTEROL [Suspect]
     Active Substance: ALBUTEROL
     Indication: Product used for unknown indication
     Dosage: X 100 MCG (UG)
     Route: 055
     Dates: start: 2019
  4. NITROGLYCERIN [Suspect]
     Active Substance: NITROGLYCERIN
     Indication: Cardiac disorder
     Dosage: 0.4 MG, PRN
     Route: 065
     Dates: start: 2020
  5. BILASTINE [Concomitant]
     Active Substance: BILASTINE
     Indication: Product used for unknown indication
     Dosage: 10 MG
     Route: 048
  6. BILASTINE [Concomitant]
     Active Substance: BILASTINE
     Dosage: UNK, QD
     Route: 065
     Dates: start: 2020
  7. REACTINE [Concomitant]
     Indication: Product used for unknown indication
     Dosage: 10-20 MG
     Route: 048
     Dates: start: 1995, end: 2015
  8. SPIRIVA [Concomitant]
     Active Substance: TIOTROPIUM BROMIDE MONOHYDRATE
     Indication: Product used for unknown indication
     Dosage: 18 MCG (UG)
     Route: 055
     Dates: start: 2018
  9. PULMICORT TURBUHALER [Concomitant]
     Active Substance: BUDESONIDE
     Indication: Product used for unknown indication
     Dosage: 200 MCG (UG)
     Route: 055
     Dates: start: 2018
  10. LEVOTHYROXINE [Concomitant]
     Active Substance: LEVOTHYROXINE
     Indication: Thyroid adenoma
     Dosage: 175 MCG (UG)
     Route: 065
     Dates: start: 2018
  11. NAPROXEN SODIUM [Concomitant]
     Active Substance: NAPROXEN SODIUM
     Indication: Product used for unknown indication
     Dosage: 220 MG
     Route: 048

REACTIONS (1)
  - Cerebrovascular accident [Unknown]

NARRATIVE: CASE EVENT DATE: 20200101
